FAERS Safety Report 8618677-3 (Version None)
Quarter: 2012Q3

REPORT INFORMATION
  Report Type: 
  Country: None (occurrence: None)
  Receive Date: 20120824
  Receipt Date: 20120815
  Transmission Date: 20120928
  Serious: Yes (Hospitalization, Other)
  Sender: FDA-Public Use
  Company Number: BR-SANOFI-AVENTIS-2012SA058898

PATIENT
  Age: 65 Year
  Sex: Female
  Weight: 76 kg

DRUGS (11)
  1. OLANZAPINE [Concomitant]
     Indication: BIPOLAR DISORDER
     Route: 048
  2. ENALAPRIL MALEATE [Concomitant]
     Indication: BLOOD PRESSURE
     Route: 048
  3. ASPIRIN [Concomitant]
     Indication: ANTICOAGULANT THERAPY
     Route: 048
     Dates: start: 20090101
  4. BISOPROLOL FUMARATE [Concomitant]
     Route: 048
  5. ROSUVASTATIN [Concomitant]
     Route: 048
  6. FOLIC ACID [Concomitant]
     Indication: RENAL DISORDER
     Route: 048
     Dates: start: 20120101
  7. CLONAZEPAM [Concomitant]
     Route: 048
  8. FLUOXETINE HCL [Concomitant]
     Indication: DEPRESSION
     Route: 048
  9. BISOPROLOL FUMARATE [Concomitant]
     Indication: BLOOD PRESSURE
     Route: 048
  10. LANTUS [Suspect]
     Indication: TYPE 2 DIABETES MELLITUS
     Route: 058
     Dates: start: 20050101
  11. ISOSORBIDE MONONITRATE [Concomitant]
     Route: 048

REACTIONS (9)
  - INJECTION SITE HAEMORRHAGE [None]
  - HYPERGLYCAEMIA [None]
  - DIZZINESS [None]
  - ARTERIAL OCCLUSIVE DISEASE [None]
  - CEREBROVASCULAR ACCIDENT [None]
  - INJECTION SITE PAIN [None]
  - INFARCTION [None]
  - INJECTION SITE REACTION [None]
  - INJECTION SITE HAEMATOMA [None]
